FAERS Safety Report 26169028 (Version 1)
Quarter: 2025Q4

REPORT INFORMATION
  Report Type: Spontaneous
  Country: EU (occurrence: EU)
  Receive Date: 20251217
  Receipt Date: 20251217
  Transmission Date: 20260117
  Serious: Yes (Death, Life-Threatening)
  Sender: ROCHE
  Company Number: EU-BoehringerIngelheim-2025-BI-110033

PATIENT
  Age: 88 Year
  Sex: Female

DRUGS (5)
  1. METALYSE [Suspect]
     Active Substance: TENECTEPLASE
     Indication: Infarction
     Route: 042
  2. APIXABAN [Suspect]
     Active Substance: APIXABAN
     Indication: Product used for unknown indication
  3. APIXABAN [Suspect]
     Active Substance: APIXABAN
  4. HYDROCHLOROTHIAZIDE [Concomitant]
     Active Substance: HYDROCHLOROTHIAZIDE
     Indication: Product used for unknown indication
  5. CANDESARTAN [Concomitant]
     Active Substance: CANDESARTAN
     Indication: Product used for unknown indication

REACTIONS (2)
  - Infarction [Fatal]
  - Cerebral haemorrhage [Recovered/Resolved]

NARRATIVE: CASE EVENT DATE: 20250619
